FAERS Safety Report 17322580 (Version 1)
Quarter: 2020Q1

REPORT INFORMATION
  Report Type: Spontaneous
  Country: US (occurrence: US)
  Receive Date: 20200107
  Receipt Date: 20200107
  Transmission Date: 20200409
  Serious: Yes (Disabling)
  Sender: FDA-Public Use
  Company Number: None

PATIENT
  Age: 91 Year
  Sex: Female
  Weight: 56.7 kg

DRUGS (4)
  1. BAUSCH + LOMB MURO 128 5% [Concomitant]
  2. ARMOUR THYROID [Concomitant]
     Active Substance: THYROID, PORCINE
  3. PREDNISONE. [Concomitant]
     Active Substance: PREDNISONE
  4. LEVOFLOXACIN -INTRAVENOUS 750MG [Suspect]
     Active Substance: LEVOFLOXACIN
     Indication: PRODUCT USED FOR UNKNOWN INDICATION
     Dosage: ?          QUANTITY:60 DF DOSAGE FORM;?
     Route: 042

REACTIONS (5)
  - Rash [None]
  - Swelling face [None]
  - Tendon disorder [None]
  - Gait disturbance [None]
  - Ocular hyperaemia [None]

NARRATIVE: CASE EVENT DATE: 20190518
